FAERS Safety Report 10993479 (Version 1)
Quarter: 2015Q2

REPORT INFORMATION
  Report Type: Spontaneous
  Country: US (occurrence: None)
  Receive Date: 20150406
  Receipt Date: 20150406
  Transmission Date: 20150821
  Serious: Yes (Other)
  Sender: FDA-Public Use
  Company Number: None

PATIENT
  Age: 62 Year
  Sex: Female
  Weight: 53.98 kg

DRUGS (4)
  1. DIAZEPAM 5 MG BAYER [Suspect]
     Active Substance: DIAZEPAM
     Indication: ADJUSTMENT DISORDER WITH ANXIETY
     Dosage: 2 TABS BID PO
     Route: 048
     Dates: start: 201312, end: 201403
  2. DIAZEPAM 5 MG BAYER [Suspect]
     Active Substance: DIAZEPAM
     Indication: DEPRESSION
     Dosage: 2 TABS BID PO
     Route: 048
     Dates: start: 201312, end: 201403
  3. DIAZEPAM 5 MG BAYER [Suspect]
     Active Substance: DIAZEPAM
     Indication: AFFECTIVE DISORDER
     Dosage: 2 TABS BID PO
     Route: 048
     Dates: start: 201312, end: 201403
  4. DIAZEPAM 5 MG BAYER [Suspect]
     Active Substance: DIAZEPAM
     Indication: ADJUSTMENT DISORDER WITH DEPRESSED MOOD
     Dosage: 2 TABS BID PO
     Route: 048
     Dates: start: 201312, end: 201403

REACTIONS (1)
  - Anxiety [None]

NARRATIVE: CASE EVENT DATE: 201408
